FAERS Safety Report 10206609 (Version 4)
Quarter: 2015Q4

REPORT INFORMATION
  Report Type: Spontaneous
  Country: US (occurrence: US)
  Receive Date: 20140530
  Receipt Date: 20151104
  Transmission Date: 20160304
  Serious: Yes (Hospitalization)
  Sender: FDA-Public Use
  Company Number: US-GLAXOSMITHKLINE-A1064791A

PATIENT
  Age: 35 Year
  Sex: Female

DRUGS (6)
  1. FLOLAN [Suspect]
     Active Substance: EPOPROSTENOL SODIUM
     Dosage: 13 DF, UNK,  (CONC: 15000 NG/ML, PUMP RATE 80 ML/DAY AND 1.5 MG VIAL STRENGTH
     Dates: start: 20140214
  2. FLOLAN [Suspect]
     Active Substance: EPOPROSTENOL SODIUM
     Dosage: UNK
  3. FLOLAN [Suspect]
     Active Substance: EPOPROSTENOL SODIUM
     Dosage: UNK
  4. LETAIRIS [Suspect]
     Active Substance: AMBRISENTAN
     Indication: PRODUCT USED FOR UNKNOWN INDICATION
     Dosage: UNK, U
     Route: 065
  5. FLOLAN [Suspect]
     Active Substance: EPOPROSTENOL SODIUM
     Indication: PULMONARY ARTERIAL HYPERTENSION
     Dosage: 6 NG/KG/MIN (CONCENTRATION 15000 NG/ML, 1.5 VIAL STRENGTH)11 NG/KG/MIN, CONCENTRATION 15,000 NG[...]
     Route: 042
  6. FLOLAN [Suspect]
     Active Substance: EPOPROSTENOL SODIUM
     Dosage: UNK

REACTIONS (8)
  - Malaise [Unknown]
  - Dyspnoea [Unknown]
  - Chest pain [Unknown]
  - Lung disorder [Unknown]
  - Dyspnoea exertional [Unknown]
  - Feeling cold [Unknown]
  - Headache [Unknown]
  - Dizziness [Unknown]

NARRATIVE: CASE EVENT DATE: 20140304
